FAERS Safety Report 11452418 (Version 1)
Quarter: 2015Q3

REPORT INFORMATION
  Report Type: Spontaneous
  Country: US (occurrence: US)
  Receive Date: 20150831
  Receipt Date: 20150831
  Transmission Date: 20151125
  Serious: No
  Sender: FDA-Public Use
  Company Number: US-ELI_LILLY_AND_COMPANY-US200908000667

PATIENT
  Age: 30 Year
  Sex: Female

DRUGS (3)
  1. ALBUTEROL. [Concomitant]
     Active Substance: ALBUTEROL
  2. CYMBALTA [Suspect]
     Active Substance: DULOXETINE HYDROCHLORIDE
     Indication: ANXIETY
     Dosage: 30 MG, UNK
     Dates: start: 20090801, end: 20090801
  3. IBUPROFEN. [Concomitant]
     Active Substance: IBUPROFEN

REACTIONS (14)
  - Oxygen saturation decreased [Recovered/Resolved]
  - Fatigue [Not Recovered/Not Resolved]
  - Chest pain [Not Recovered/Not Resolved]
  - Mydriasis [Recovered/Resolved]
  - Cold sweat [Not Recovered/Not Resolved]
  - Emotional distress [Recovered/Resolved]
  - Yawning [Unknown]
  - Chest discomfort [Not Recovered/Not Resolved]
  - Headache [Unknown]
  - Disorientation [Unknown]
  - Feeling abnormal [Not Recovered/Not Resolved]
  - Cyanosis [Unknown]
  - Paraesthesia [Not Recovered/Not Resolved]
  - Palpitations [Not Recovered/Not Resolved]

NARRATIVE: CASE EVENT DATE: 200908
